FAERS Safety Report 23516866 (Version 1)
Quarter: 2024Q1

REPORT INFORMATION
  Report Type: Spontaneous
  Country: IT (occurrence: IT)
  Receive Date: 20240213
  Receipt Date: 20240213
  Transmission Date: 20240410
  Serious: Yes (Other)
  Sender: FDA-Public Use
  Company Number: IT-TEVA-VS-3153236

PATIENT
  Age: 29 Year
  Sex: Male

DRUGS (1)
  1. LACOSAMIDE [Suspect]
     Active Substance: LACOSAMIDE
     Indication: Epilepsy
     Route: 065

REACTIONS (5)
  - Seizure [Unknown]
  - Drug effect less than expected [Unknown]
  - Fall [Unknown]
  - Epilepsy [Unknown]
  - Head injury [Unknown]
